FAERS Safety Report 4730084-2 (Version None)
Quarter: 2005Q3

REPORT INFORMATION
  Report Type: 
  Country: None (occurrence: None)
  Receive Date: 20050728
  Receipt Date: 20050715
  Transmission Date: 20060218
  Serious: Yes (Hospitalization, Other)
  Sender: FDA-Public Use
  Company Number: HQWYE307721JUL04

PATIENT
  Age: 41 Year
  Sex: Female

DRUGS (12)
  1. RAPAMUNE [Suspect]
     Indication: PROPHYLAXIS AGAINST TRANSPLANT REJECTION
     Dosage: 3 MG 1X PER 1 DAY, ORAL
     Route: 048
     Dates: start: 20030620
  2. PREDNISONE [Suspect]
     Indication: IMMUNOSUPPRESSANT DRUG THERAPY
     Dosage: 10 MG, TAPERING DOSES, ORAL
     Route: 048
  3. PROGRAF [Suspect]
     Indication: IMMUNOSUPPRESSANT DRUG THERAPY
     Dosage: 4 MG 2X PER 1 DAY, ORAL
     Route: 048
  4. LIPITOR [Concomitant]
  5. LASIX [Concomitant]
  6. VERAPAMIL [Concomitant]
  7. VICODIN (HYROCODONE BITARTRATE/PARACETAMOL) [Concomitant]
  8. BACTRIM [Concomitant]
  9. PROTONIX [Concomitant]
  10. PAXIL [Concomitant]
  11. SYNTHROID [Concomitant]
  12. PLAQUENOL (HYDROXYCHOROQUINE PHOSPHATE) [Concomitant]

REACTIONS (8)
  - ALANINE AMINOTRANSFERASE INCREASED [None]
  - BLOOD BICARBONATE INCREASED [None]
  - BLOOD CHLORIDE DECREASED [None]
  - BLOOD PHOSPHORUS DECREASED [None]
  - BLOOD SODIUM DECREASED [None]
  - DIABETES MELLITUS [None]
  - RESPIRATORY RATE INCREASED [None]
  - WHITE BLOOD CELL COUNT INCREASED [None]
